FAERS Safety Report 9873014 (Version 2)
Quarter: 2014Q1

REPORT INFORMATION
  Report Type: Spontaneous
  Country: US (occurrence: US)
  Receive Date: 20140206
  Receipt Date: 20140206
  Transmission Date: 20141002
  Serious: No
  Sender: FDA-Public Use
  Company Number: US-ACORDA-ACO_30153_2012

PATIENT
  Age: 73 Year
  Sex: Female
  Weight: 118.82 kg

DRUGS (3)
  1. AMPYRA [Suspect]
     Indication: GAIT DISTURBANCE
     Dosage: 10 MG, Q 12 HRS
     Route: 048
     Dates: start: 20100907, end: 20101103
  2. CARBAMAZEPINE [Concomitant]
     Indication: TRIGEMINAL NEURALGIA
     Dosage: 100 MG, QD, PRN
     Dates: start: 20070126
  3. GABAPENTIN [Concomitant]
     Indication: TRIGEMINAL NEURALGIA
     Dosage: 300 MG, TID
     Route: 048
     Dates: start: 20070109

REACTIONS (2)
  - Trigeminal neuralgia [Recovered/Resolved]
  - Drug ineffective [None]
